FAERS Safety Report 24884731 (Version 1)
Quarter: 2025Q1

REPORT INFORMATION
  Report Type: Spontaneous
  Country: US (occurrence: US)
  Receive Date: 20250124
  Receipt Date: 20250124
  Transmission Date: 20250408
  Serious: No
  Sender: SANOFI AVENTIS
  Company Number: US-SA-2025SA021219

PATIENT
  Sex: Female

DRUGS (22)
  1. KEVZARA [Suspect]
     Active Substance: SARILUMAB
     Indication: Rheumatoid arthritis
  2. ACTEMRA [Concomitant]
     Active Substance: TOCILIZUMAB
  3. ORENCIA [Concomitant]
     Active Substance: ABATACEPT
  4. ENBREL [Concomitant]
     Active Substance: ETANERCEPT
  5. REMICADE [Concomitant]
     Active Substance: INFLIXIMAB
  6. RASUVO [Concomitant]
     Active Substance: METHOTREXATE SODIUM
  7. ARAVA [Concomitant]
     Active Substance: LEFLUNOMIDE
  8. OLUMIANT [Concomitant]
     Active Substance: BARICITINIB
  9. SIMPONI [Concomitant]
     Active Substance: GOLIMUMAB
  10. HUMIRA [Concomitant]
     Active Substance: ADALIMUMAB
  11. LIDOCAINE [Concomitant]
     Active Substance: LIDOCAINE
  12. HYDROXYCHLOROQUINE [Concomitant]
     Active Substance: HYDROXYCHLOROQUINE
  13. DICLOFENAC [Concomitant]
     Active Substance: DICLOFENAC
  14. SULFASALAZINE [Concomitant]
     Active Substance: SULFASALAZINE
  15. MIRALAX [Concomitant]
     Active Substance: POLYETHYLENE GLYCOL 3350
  16. VITAMIN D3 [Concomitant]
     Active Substance: CHOLECALCIFEROL
  17. TRAMADOL [Concomitant]
     Active Substance: TRAMADOL
  18. FAMOTIDINE [Concomitant]
     Active Substance: FAMOTIDINE
  19. ACETAMINOPHEN [Concomitant]
     Active Substance: ACETAMINOPHEN
  20. METFORMIN [Concomitant]
     Active Substance: METFORMIN HYDROCHLORIDE
  21. ZOLOFT [Concomitant]
     Active Substance: SERTRALINE HYDROCHLORIDE
  22. CRESTOR [Concomitant]
     Active Substance: ROSUVASTATIN CALCIUM

REACTIONS (1)
  - Pruritus [Unknown]
